FAERS Safety Report 20747330 (Version 1)
Quarter: 2022Q2

REPORT INFORMATION
  Report Type: Spontaneous
  Country: US (occurrence: US)
  Receive Date: 20220425
  Receipt Date: 20220425
  Transmission Date: 20220720
  Serious: No
  Sender: FDA-Public Use
  Company Number: US-SA-SAC20220420000519

PATIENT
  Sex: Male
  Weight: 30.839 kg

DRUGS (9)
  1. LUMIZYME [Suspect]
     Active Substance: ALGLUCOSIDASE ALFA
     Indication: Glycogen storage disease type II
     Dosage: 1200 MG, QW
     Route: 042
     Dates: start: 20210114
  2. ROCEPHIN [Concomitant]
     Active Substance: CEFTRIAXONE SODIUM
  3. HEPARIN [Concomitant]
     Active Substance: HEPARIN SODIUM
  4. STERILE WATER [Concomitant]
     Active Substance: WATER
  5. EPINEPHRINE [Concomitant]
     Active Substance: EPINEPHRINE
  6. CLARITIN [Concomitant]
     Active Substance: LORATADINE
     Dosage: UNK (CO Q-10)
  7. TOBRAMYCIN SULFATE [Concomitant]
     Active Substance: TOBRAMYCIN SULFATE
  8. SODIUM CHLORIDE [Concomitant]
     Active Substance: SODIUM CHLORIDE
  9. VANCOMYCIN [Concomitant]
     Active Substance: VANCOMYCIN

REACTIONS (1)
  - Dyspnoea [Unknown]
